FAERS Safety Report 11117410 (Version 2)
Quarter: 2015Q2

REPORT INFORMATION
  Report Type: Spontaneous
  Country: US (occurrence: US)
  Receive Date: 20150516
  Receipt Date: 20150516
  Transmission Date: 20150821
  Serious: Yes (Hospitalization)
  Sender: FDA-Public Use
  Company Number: US-SUN PHARMACEUTICAL INDUSTRIES LTD-2015US-96840

PATIENT
  Age: 8 Year
  Sex: Male

DRUGS (1)
  1. COTRIMOXAZOLE [Suspect]
     Active Substance: SULFAMETHOXAZOLE\TRIMETHOPRIM
     Indication: CELLULITIS
     Dosage: UNK
     Route: 048

REACTIONS (3)
  - Drug eruption [Recovered/Resolved]
  - Post inflammatory pigmentation change [Not Recovered/Not Resolved]
  - Drug ineffective [Unknown]
